FAERS Safety Report 6163047-3 (Version None)
Quarter: 2009Q2

REPORT INFORMATION
  Report Type: 
  Country: None (occurrence: None)
  Receive Date: 20090422
  Receipt Date: 20090408
  Transmission Date: 20091009
  Serious: Yes (Life-Threatening, Hospitalization, Disabling, Other)
  Sender: FDA-Public Use
  Company Number: GB-RANBAXY-2009RR-23454

PATIENT
  Age: 58 Year
  Sex: Male

DRUGS (9)
  1. CLARITHROMYCIN [Suspect]
     Indication: RESPIRATORY TRACT INFECTION
     Dosage: 500 MG, BID
     Route: 048
     Dates: start: 20081201, end: 20081201
  2. SIMVASTATIN [Suspect]
     Indication: BLOOD CHOLESTEROL INCREASED
     Dosage: 40 MG, QD
     Route: 048
     Dates: end: 20090101
  3. ALFACALCIDOL [Concomitant]
     Indication: BLOOD CALCIUM DECREASED
  4. ALLOPURINOL [Concomitant]
     Indication: GOUT
     Dosage: 100 MG, UNK
  5. ASPIRIN [Concomitant]
     Dosage: 75 MG, UNK
  6. CYCLOSPORINE [Concomitant]
     Indication: RENAL TRANSPLANT
     Dosage: 100 MG, BID
     Route: 048
  7. INSULIN [Concomitant]
     Indication: TYPE 1 DIABETES MELLITUS
  8. IRBESARTAN [Concomitant]
     Indication: BLOOD PRESSURE
  9. SILDENAFIL CITRATE [Concomitant]

REACTIONS (5)
  - BLOOD CREATINE PHOSPHOKINASE INCREASED [None]
  - BLOOD POTASSIUM INCREASED [None]
  - METABOLIC ACIDOSIS [None]
  - MYOPATHY [None]
  - PARALYSIS [None]
